FAERS Safety Report 5790784-2 (Version None)
Quarter: 2008Q2

REPORT INFORMATION
  Report Type: 
  Country: None (occurrence: None)
  Receive Date: 20080626
  Receipt Date: 20080506
  Transmission Date: 20081010
  Serious: No
  Sender: FDA-Public Use
  Company Number: A0726506A

PATIENT
  Age: 33 Year
  Sex: Female
  Weight: 79 kg

DRUGS (2)
  1. ALLI [Suspect]
     Dates: start: 20080428
  2. ORAL CONTRACEPTIVE [Concomitant]

REACTIONS (2)
  - GENITAL HAEMORRHAGE [None]
  - POLYMENORRHOEA [None]
